FAERS Safety Report 24615269 (Version 1)
Quarter: 2024Q4

REPORT INFORMATION
  Report Type: Spontaneous
  Country: US (occurrence: US)
  Receive Date: 20241113
  Receipt Date: 20241113
  Transmission Date: 20250114
  Serious: No
  Sender: SANOFI AVENTIS
  Company Number: US-SA-2024SA326307

PATIENT
  Age: 18 Year
  Sex: Female
  Weight: 44.82 kg

DRUGS (7)
  1. DUPIXENT [Suspect]
     Active Substance: DUPILUMAB
     Indication: Dermatitis atopic
     Dosage: 300 MG, QOW
     Route: 058
     Dates: start: 20240910, end: 20241030
  2. MIRTAZAPINE [Concomitant]
     Active Substance: MIRTAZAPINE
  3. BUSPIRONE [Concomitant]
     Active Substance: BUSPIRONE HYDROCHLORIDE
  4. KETOTIFEN [Concomitant]
     Active Substance: KETOTIFEN
  5. FLUTICASONE PROPIONATE [Concomitant]
     Active Substance: FLUTICASONE PROPIONATE
  6. MONTELUKAST [Concomitant]
     Active Substance: MONTELUKAST
  7. MEDROXYPROGESTERONE [Concomitant]
     Active Substance: MEDROXYPROGESTERONE

REACTIONS (7)
  - Blepharospasm [Unknown]
  - Eczema [Unknown]
  - Pruritus [Unknown]
  - Skin burning sensation [Unknown]
  - Dry eye [Unknown]
  - Asthenopia [Unknown]
  - Lacrimation increased [Unknown]

NARRATIVE: CASE EVENT DATE: 20240101
